FAERS Safety Report 19139186 (Version 1)
Quarter: 2021Q2

REPORT INFORMATION
  Report Type: Spontaneous
  Country: US (occurrence: US)
  Receive Date: 20210414
  Receipt Date: 20210414
  Transmission Date: 20210717
  Serious: Yes (Other)
  Sender: FDA-Public Use
  Company Number: None

PATIENT
  Age: 75 Year
  Sex: Male
  Weight: 40.05 kg

DRUGS (2)
  1. MVASI [Suspect]
     Active Substance: BEVACIZUMAB-AWWB
     Indication: HEPATIC CANCER METASTATIC
     Dosage: ?          OTHER FREQUENCY:ONCE;?
     Route: 042
     Dates: start: 20210405, end: 20210405
  2. MVASI [Suspect]
     Active Substance: BEVACIZUMAB-AWWB
     Indication: ADENOCARCINOMA OF COLON
     Dosage: ?          OTHER FREQUENCY:ONCE;?
     Route: 042
     Dates: start: 20210405, end: 20210405

REACTIONS (1)
  - Pulmonary haemorrhage [None]

NARRATIVE: CASE EVENT DATE: 20210412
